FAERS Safety Report 21139699 (Version 14)
Quarter: 2024Q2

REPORT INFORMATION
  Report Type: Report from Study
  Country: ES (occurrence: ES)
  Receive Date: 20220727
  Receipt Date: 20240419
  Transmission Date: 20240716
  Serious: Yes (Other)
  Sender: FDA-Public Use
  Company Number: ES-ABBVIE-22K-144-4426794-00

PATIENT
  Age: 75 Year
  Sex: Male

DRUGS (12)
  1. CARBIDOPA\LEVODOPA [Suspect]
     Active Substance: CARBIDOPA\LEVODOPA
     Indication: Parkinson^s disease
     Dosage: DOSES CONTINUE TO BE ADJUSTED UPWARDS
     Route: 050
     Dates: start: 2022
  2. CARBIDOPA\LEVODOPA [Suspect]
     Active Substance: CARBIDOPA\LEVODOPA
     Dosage: CONTINUOUS DOSE 1.5 ML/H
     Route: 050
     Dates: start: 20220804, end: 20220919
  3. CARBIDOPA\LEVODOPA [Suspect]
     Active Substance: CARBIDOPA\LEVODOPA
     Dosage: INCREASE THE CONTINUOUS DOSE BY 0.2 ML/H
     Route: 050
     Dates: start: 20220919, end: 2022
  4. CARBIDOPA\LEVODOPA [Suspect]
     Active Substance: CARBIDOPA\LEVODOPA
     Dosage: 4+3 MORNING DOSE, 0.9 CONTINUOUS DOSE AND 1 EXTRA DOSE
     Route: 050
     Dates: start: 2022, end: 2022
  5. CARBIDOPA\LEVODOPA [Suspect]
     Active Substance: CARBIDOPA\LEVODOPA
     Dosage: DOSES CONTINUE TO BE ADJUSTED UPWARDS
     Route: 050
     Dates: start: 2022
  6. CARBIDOPA\LEVODOPA [Suspect]
     Active Substance: CARBIDOPA\LEVODOPA
     Dosage: MORNING DOSE 4+3, CONTINUOUS DOSE 1.3 AND EXTRA DOSE 2 ML
     Route: 050
     Dates: start: 20190927, end: 20220804
  7. CARBIDOPA\LEVODOPA [Suspect]
     Active Substance: CARBIDOPA\LEVODOPA
     Dosage: 1.1 CONTINUOUS DOSE AND 2 EXTRA DOSES
     Route: 050
  8. SINEMET [Concomitant]
     Active Substance: CARBIDOPA\LEVODOPA
     Indication: Product used for unknown indication
     Dosage: RETARD
  9. SINEMET [Concomitant]
     Active Substance: CARBIDOPA\LEVODOPA
     Indication: Product used for unknown indication
     Dosage: RETARD
  10. SINEMET [Concomitant]
     Active Substance: CARBIDOPA\LEVODOPA
     Indication: Product used for unknown indication
     Dosage: RETARD
  11. NEUPRO [Concomitant]
     Active Substance: ROTIGOTINE
     Indication: Product used for unknown indication
  12. NEUPRO [Concomitant]
     Active Substance: ROTIGOTINE
     Indication: Product used for unknown indication
     Route: 062
     Dates: start: 20220727

REACTIONS (17)
  - Hypertensive crisis [Recovered/Resolved]
  - Blood pressure increased [Not Recovered/Not Resolved]
  - Foot deformity [Recovered/Resolved]
  - Factitious disorder [Unknown]
  - Bradykinesia [Unknown]
  - Feeling of despair [Unknown]
  - Intentional product misuse [Unknown]
  - Reduced facial expression [Unknown]
  - Speech disorder [Not Recovered/Not Resolved]
  - Dystonia [Unknown]
  - Gait disturbance [Recovering/Resolving]
  - Tremor [Not Recovered/Not Resolved]
  - Malaise [Recovering/Resolving]
  - On and off phenomenon [Recovering/Resolving]
  - Drug ineffective [Unknown]
  - Therapeutic product effect incomplete [Recovered/Resolved]
  - Pain [Not Recovered/Not Resolved]

NARRATIVE: CASE EVENT DATE: 20220501
